FAERS Safety Report 14713534 (Version 1)
Quarter: 2018Q2

REPORT INFORMATION
  Report Type: Spontaneous
  Country: US (occurrence: US)
  Receive Date: 20180404
  Receipt Date: 20180404
  Transmission Date: 20180711
  Serious: No
  Sender: FDA-Public Use
  Company Number: US-PFIZER INC-2018031615

PATIENT
  Age: 76 Year
  Sex: Male

DRUGS (15)
  1. IBRANCE [Suspect]
     Active Substance: PALBOCICLIB
     Indication: BREAST CANCER MALE
     Dosage: 100 MG, CYCLIC (ONCE DAILY FOR 21 DAYS, THEN 7 DAYS OFF)
     Route: 048
  2. DIPHENATOL [Concomitant]
     Active Substance: ATROPINE SULFATE\DIPHENOXYLATE HYDROCHLORIDE
     Dosage: UNK [ATROPINE SULFATE: 2.5 MG] / [DIPHENOXYLATE HYDROCHLORIDE: 0.02 MG]
  3. CARTIA XT [Concomitant]
     Active Substance: DILTIAZEM HYDROCHLORIDE
     Dosage: 240 MG, UNK (2 CAP)
  4. CLINDAMYCIN. [Concomitant]
     Active Substance: CLINDAMYCIN
     Dosage: 300 MG, UNK
  5. DICYCLOMINE [Concomitant]
     Active Substance: DICYCLOMINE HYDROCHLORIDE
     Dosage: 10 MG, UNK
  6. GABAPENTIN. [Concomitant]
     Active Substance: GABAPENTIN
     Dosage: 300 MG, UNK
  7. WARFARIN SODIUM. [Concomitant]
     Active Substance: WARFARIN SODIUM
     Dosage: 7.5 MG, UNK
  8. ALPRAZOLAM. [Concomitant]
     Active Substance: ALPRAZOLAM
     Dosage: 0.25 MG, UNK
  9. MELOXICAM. [Concomitant]
     Active Substance: MELOXICAM
     Dosage: 15 MG, UNK
  10. MUPIROCIN. [Concomitant]
     Active Substance: MUPIROCIN
     Dosage: UNK
  11. SIMVASTATIN. [Concomitant]
     Active Substance: SIMVASTATIN
     Dosage: 80 MG, UNK
  12. BENADRYL [Concomitant]
     Active Substance: DIPHENHYDRAMINE HYDROCHLORIDE
     Dosage: 25 MG, UNK
  13. ELIQUIS [Concomitant]
     Active Substance: APIXABAN
     Dosage: 5 MG, UNK
  14. DONEPEZIL HCL [Concomitant]
     Active Substance: DONEPEZIL HYDROCHLORIDE
     Dosage: 10 MG, UNK
  15. TAMSULOSIN H [Concomitant]
     Dosage: 0.4 MG, UNK

REACTIONS (2)
  - Product use issue [Unknown]
  - Influenza [Recovered/Resolved]
